FAERS Safety Report 21978566 (Version 2)
Quarter: 2023Q1

REPORT INFORMATION
  Report Type: Spontaneous
  Country: JP (occurrence: JP)
  Receive Date: 20230210
  Receipt Date: 20230216
  Transmission Date: 20230418
  Serious: Yes (Life-Threatening, Disabling, Other)
  Sender: FDA-Public Use
  Company Number: JP-GILEAD-2023-0615735

PATIENT
  Age: 69 Year
  Sex: Female
  Weight: 37.2 kg

DRUGS (18)
  1. VEKLURY [Suspect]
     Active Substance: REMDESIVIR
     Indication: COVID-19
     Dosage: 200 MG, QD
     Route: 041
     Dates: start: 20230110, end: 20230110
  2. MIYA-BM [Concomitant]
     Active Substance: CLOSTRIDIUM BUTYRICUM SPORES STRAIN M-55
  3. ETIZOLAM [Concomitant]
     Active Substance: ETIZOLAM
  4. FUROSEMIDE [Concomitant]
     Active Substance: FUROSEMIDE
  5. RABEPRAZOLE SODIUM [Concomitant]
     Active Substance: RABEPRAZOLE SODIUM
  6. CAMOSTAT MESYLATE [Concomitant]
     Active Substance: CAMOSTAT MESYLATE
  7. TRIAZOLAM [Concomitant]
     Active Substance: TRIAZOLAM
  8. RAMELTEON [Concomitant]
     Active Substance: RAMELTEON
  9. TOFRANIL [Concomitant]
     Active Substance: IMIPRAMINE HYDROCHLORIDE
  10. URSODIOL [Concomitant]
     Active Substance: URSODIOL
  11. BISOPROLOL FUMARATE [Concomitant]
     Active Substance: BISOPROLOL FUMARATE
  12. PANTETHINE [Concomitant]
     Active Substance: PANTETHINE
  13. MOSAPRIDE CITRATE [Concomitant]
     Active Substance: MOSAPRIDE CITRATE
  14. POTASSIUM ASPARTATE [Concomitant]
     Active Substance: POTASSIUM ASPARTATE
  15. ATORVASTATIN [Concomitant]
     Active Substance: ATORVASTATIN
  16. FEBUXOSTAT [Concomitant]
     Active Substance: FEBUXOSTAT
  17. REBAMIPIDE [Concomitant]
     Active Substance: REBAMIPIDE
  18. HYALURONATE SODIUM [Concomitant]
     Active Substance: HYALURONATE SODIUM

REACTIONS (2)
  - Anaphylactic shock [Recovered/Resolved with Sequelae]
  - Respiratory arrest [Recovered/Resolved with Sequelae]

NARRATIVE: CASE EVENT DATE: 20230110
